FAERS Safety Report 8888304 (Version 1)
Quarter: 2012Q4

REPORT INFORMATION
  Report Type: 
  Country: SE (occurrence: SE)
  Receive Date: 20121106
  Receipt Date: 20121106
  Transmission Date: 20130627
  Serious: Yes (Hospitalization)
  Sender: FDA-Public Use
  Company Number: SE-PFIZER INC-2012268891

PATIENT
  Sex: Female
  Weight: 111 kg

DRUGS (10)
  1. GENOTROPIN [Suspect]
     Indication: PANHYPOPITUITARISM
     Dosage: 0.4 mg, 1x/day, 7 injections/week
     Route: 058
     Dates: start: 20041104
  2. DHEA [Concomitant]
     Indication: BLOOD LUTEINISING HORMONE DECREASED
     Dosage: UNK
     Dates: start: 20040513
  3. DHEA [Concomitant]
     Indication: BLOOD FOLLICLE STIMULATING HORMONE DECREASED
  4. DHEA [Concomitant]
     Indication: HYPOGONADISM FEMALE
  5. EVOREL [Concomitant]
     Indication: BLOOD LUTEINISING HORMONE DECREASED
     Dosage: UNK
     Dates: start: 20041121
  6. EVOREL [Concomitant]
     Indication: BLOOD FOLLICLE STIMULATING HORMONE DECREASED
  7. EVOREL [Concomitant]
     Indication: HYPOGONADISM FEMALE
  8. HYDROCORTONE [Concomitant]
     Indication: BLOOD CORTICOTROPHIN DECREASED
     Dosage: UNK
     Dates: start: 20040514
  9. LEVAXIN [Concomitant]
     Indication: BLOOD THYROID STIMULATING HORMONE DECREASED
     Dosage: UNK
     Dates: start: 20031103
  10. LEVAXIN [Concomitant]
     Indication: PRIMARY HYPOTHYROIDISM

REACTIONS (1)
  - Cholelithiasis [Unknown]
